FAERS Safety Report 15906140 (Version 1)
Quarter: 2019Q1

REPORT INFORMATION
  Report Type: Spontaneous
  Country: US (occurrence: US)
  Receive Date: 20190111
  Receipt Date: 20190111
  Transmission Date: 20190417
  Serious: Yes (Disabling, Other)
  Sender: FDA-Public Use
  Company Number: None

PATIENT
  Age: 70 Year
  Sex: Female
  Weight: 95.26 kg

DRUGS (17)
  1. EPIPEN [Concomitant]
     Active Substance: EPINEPHRINE
  2. VITAMIN D3 [Concomitant]
     Active Substance: CHOLECALCIFEROL
  3. FOSINIPRIL [Concomitant]
  4. COMBIGAN [Concomitant]
     Active Substance: BRIMONIDINE TARTRATE\TIMOLOL MALEATE
  5. PREDNISOLONE. [Concomitant]
     Active Substance: PREDNISOLONE
  6. ASPIRIN. [Concomitant]
     Active Substance: ASPIRIN
  7. CALCIUM [Concomitant]
     Active Substance: CALCIUM
  8. TUMS [Concomitant]
     Active Substance: CALCIUM CARBONATE
  9. TRAVATAN [Suspect]
     Active Substance: TRAVOPROST
     Indication: UVEITIS
     Dosage: ?          OTHER STRENGTH:0.024% SOLUTION;QUANTITY:1 DF DOSAGE FORM;?
     Route: 047
     Dates: start: 20180828, end: 20180829
  10. VYZULTA [Suspect]
     Active Substance: LATANOPROSTENE BUNOD
     Dates: start: 20181120, end: 20181121
  11. HYDROCHLOROTHIAZIDE. [Concomitant]
     Active Substance: HYDROCHLOROTHIAZIDE
  12. RHOPRESSA [Concomitant]
     Active Substance: NETARSUDIL MESYLATE
  13. MAGNESIUM [Concomitant]
     Active Substance: MAGNESIUM
  14. VALTREX [Concomitant]
     Active Substance: VALACYCLOVIR HYDROCHLORIDE
  15. CARVEDILOL. [Concomitant]
     Active Substance: CARVEDILOL
  16. LOVASTATIN. [Concomitant]
     Active Substance: LOVASTATIN
  17. PROBIOTIC [Concomitant]
     Active Substance: PROBIOTICS NOS

REACTIONS (5)
  - Eye pain [None]
  - Headache [None]
  - Photophobia [None]
  - Vision blurred [None]
  - Lacrimation increased [None]

NARRATIVE: CASE EVENT DATE: 20181120
